FAERS Safety Report 7221485-1 (Version None)
Quarter: 2011Q1

REPORT INFORMATION
  Report Type: 
  Country: None (occurrence: None)
  Receive Date: 20110112
  Receipt Date: 20110103
  Transmission Date: 20110831
  Serious: Yes (Other)
  Sender: FDA-Public Use
  Company Number: PHHY2011DE00603

PATIENT
  Age: 80 Year
  Sex: Male

DRUGS (3)
  1. SANDOSTATIN LAR [Suspect]
     Dosage: 30 MG, EVERY 28 DAYS
     Dates: start: 20050101
  2. SANDOSTATIN LAR [Suspect]
     Indication: NEUROENDOCRINE TUMOUR
     Dosage: 20 MG, EVERY 28 DAYS
     Dates: start: 20030101, end: 20050101
  3. SANDOSTATIN [Suspect]
     Indication: NEUROENDOCRINE TUMOUR
     Dosage: UNK
     Dates: start: 20000101, end: 20030101

REACTIONS (3)
  - DIARRHOEA [None]
  - HYPERTENSIVE CRISIS [None]
  - HYPOTENSION [None]
